FAERS Safety Report 4877471-X (Version None)
Quarter: 2006Q1

REPORT INFORMATION
  Report Type: 
  Country: None (occurrence: None)
  Receive Date: 20060109
  Receipt Date: 20060109
  Transmission Date: 20060701
  Serious: Yes (Hospitalization)
  Sender: FDA-Public Use
  Company Number: None

PATIENT
  Sex: Female
  Weight: 70.9 kg

DRUGS (5)
  1. CYCLOPHOSPHAMIDE [Suspect]
     Indication: BREAST CANCER
     Dosage: SEE IMAGE
     Dates: start: 20051215, end: 20051215
  2. TAXOTERE [Suspect]
     Dosage: SEE IMAGE
     Dates: end: 20051215
  3. DOXORUBICIN HCL [Suspect]
     Dosage: SEE IMAGE
     Dates: end: 20051215
  4. GLYBURIDE [Concomitant]
  5. METFORMIN [Concomitant]

REACTIONS (7)
  - COMA [None]
  - FATIGUE [None]
  - HYPOGLYCAEMIA [None]
  - LOSS OF CONSCIOUSNESS [None]
  - ORAL INTAKE REDUCED [None]
  - PERFORMANCE STATUS DECREASED [None]
  - STOMATITIS [None]
